FAERS Safety Report 6575028-6 (Version None)
Quarter: 2010Q1

REPORT INFORMATION
  Report Type: 
  Country: None (occurrence: None)
  Receive Date: 20100201
  Receipt Date: 20100121
  Transmission Date: 20100710
  Serious: Yes (Other)
  Sender: FDA-Public Use
  Company Number: CV20100030

PATIENT
  Age: 21 Year
  Sex: Female

DRUGS (4)
  1. PROPOFOL [Suspect]
     Indication: INDUCTION OF ANAESTHESIA
     Dosage: UNKNOWN (2.5 MG/KG); INTRAVENOUS (NOT OTHERWISE SPECIFIED)
     Route: 042
  2. ARITMAL (LIDOCAINE HYDROCHLORIDE) (LIDOCAINE HYDROCHLORIDE) [Concomitant]
  3. ATRACURIUM BESYLATE [Concomitant]
  4. FENTANYL-100 [Concomitant]

REACTIONS (9)
  - BLOOD GASES ABNORMAL [None]
  - CONJUNCTIVAL HAEMORRHAGE [None]
  - DRUG INTERACTION [None]
  - FAT EMBOLISM [None]
  - HYPOTENSION [None]
  - LUNG CONSOLIDATION [None]
  - PYREXIA [None]
  - TACHYCARDIA [None]
  - THROMBOCYTOPENIA [None]
